APPROVED DRUG PRODUCT: TETRACAINE HYDROCHLORIDE
Active Ingredient: TETRACAINE HYDROCHLORIDE
Strength: 0.5%
Dosage Form/Route: SOLUTION;OPHTHALMIC
Application: N210821 | Product #001 | TE Code: AB1
Applicant: BAUSCH AND LOMB IRELAND LTD
Approved: Mar 12, 2019 | RLD: Yes | RS: Yes | Type: RX